FAERS Safety Report 7729442-3 (Version None)
Quarter: 2011Q3

REPORT INFORMATION
  Report Type: 
  Country: None (occurrence: None)
  Receive Date: 20110906
  Receipt Date: 20110824
  Transmission Date: 20111222
  Serious: Yes (Hospitalization, Other)
  Sender: FDA-Public Use
  Company Number: DE-ELI_LILLY_AND_COMPANY-DE201108007481

PATIENT
  Sex: Female

DRUGS (4)
  1. SPECIFIC ANTIRHEUMATIC AGENTS [Concomitant]
     Indication: MUSCULOSKELETAL PAIN
  2. CALCIUM +VIT D [Concomitant]
  3. METHOTREXATE SODIUM [Concomitant]
  4. FORTEO [Suspect]
     Indication: OSTEOPOROSIS
     Dosage: UNK, QD
     Route: 058
     Dates: start: 20101110, end: 20110529

REACTIONS (2)
  - INTESTINAL ATRESIA [None]
  - ATRIAL FIBRILLATION [None]
